FAERS Safety Report 9701288 (Version 2)
Quarter: 2015Q3

REPORT INFORMATION
  Report Type: Spontaneous
  Country: US (occurrence: US)
  Receive Date: 20131121
  Receipt Date: 20150803
  Transmission Date: 20151125
  Serious: No
  Sender: FDA-Public Use
  Company Number: US-GILEAD-2008-0016358

PATIENT
  Age: 42 Year
  Sex: Female

DRUGS (5)
  1. TIZANIDINE. [Concomitant]
     Active Substance: TIZANIDINE
     Dosage: AT NIGHT
     Route: 048
  2. HALOPERIDOL. [Concomitant]
     Active Substance: HALOPERIDOL
     Route: 048
  3. LETAIRIS [Suspect]
     Active Substance: AMBRISENTAN
     Indication: PULMONARY HYPERTENSION
     Route: 048
     Dates: start: 20071112
  4. DIAZEPAM. [Concomitant]
     Active Substance: DIAZEPAM
     Route: 048
  5. TRAZODONE [Concomitant]
     Active Substance: TRAZODONE HYDROCHLORIDE
     Dosage: AT NIGHT
     Route: 048

REACTIONS (1)
  - Dizziness [Unknown]
